FAERS Safety Report 17650470 (Version 1)
Quarter: 2020Q2

REPORT INFORMATION
  Report Type: Spontaneous
  Country: US (occurrence: US)
  Receive Date: 20200409
  Receipt Date: 20200409
  Transmission Date: 20200713
  Serious: Yes (Death)
  Sender: FDA-Public Use
  Company Number: None

PATIENT
  Age: 87 Year
  Sex: Female
  Weight: 49.95 kg

DRUGS (9)
  1. AMLODIPINE 5MG, ORAL [Concomitant]
  2. IMBRUVICA 140MG, ORAL [Concomitant]
     Dates: start: 20171015, end: 20190213
  3. VOTRIENT [Suspect]
     Active Substance: PAZOPANIB HYDROCHLORIDE
     Indication: SOFT TISSUE SARCOMA
     Route: 048
     Dates: start: 20200205, end: 20200409
  4. MULTIVITAMIN ADULT, ORAL [Concomitant]
  5. BENADRYL 25MG, ORAL [Concomitant]
  6. IBU 400MG, ORAL [Concomitant]
  7. NALTREXONE 50MG, ORAL [Concomitant]
  8. LOSARTAN POTASSIUM 100MG, ORAL [Concomitant]
  9. PHENYTOIN 50MG, ORAL [Concomitant]

REACTIONS (1)
  - Death [None]

NARRATIVE: CASE EVENT DATE: 20200409
